FAERS Safety Report 7069923-1 (Version None)
Quarter: 2010Q4

REPORT INFORMATION
  Report Type: 
  Country: None (occurrence: None)
  Receive Date: 20101028
  Receipt Date: 20100722
  Transmission Date: 20110411
  Serious: No
  Sender: FDA-Public Use
  Company Number: US-WYE-H16445810

PATIENT
  Sex: Female

DRUGS (1)
  1. ADVIL [Suspect]
     Dosage: 10 TABLETS THROUGH OUT THE DAY
     Route: 048
     Dates: start: 20100721, end: 20100721

REACTIONS (3)
  - ABDOMINAL PAIN UPPER [None]
  - MENSTRUAL DISORDER [None]
  - OVERDOSE [None]
